FAERS Safety Report 18790251 (Version 1)
Quarter: 2021Q1

REPORT INFORMATION
  Report Type: Spontaneous
  Country: GB (occurrence: GB)
  Receive Date: 20210126
  Receipt Date: 20210126
  Transmission Date: 20210419
  Serious: Yes (Other)
  Sender: FDA-Public Use
  Company Number: GB-TEVA-2021-GB-1869274

PATIENT
  Age: 30 Year
  Sex: Male
  Weight: 73.02 kg

DRUGS (2)
  1. EMTRICITABINE AND TENOFOVIR [Concomitant]
     Active Substance: EMTRICITABINE\TENOFOVIR
     Indication: ILL-DEFINED DISORDER
     Route: 065
  2. DOXYCYCLINE. [Suspect]
     Active Substance: DOXYCYCLINE
     Indication: SEXUAL DYSFUNCTION
     Dosage: 200 MILLIGRAM DAILY; 100MG TWICE A DAY
     Route: 048
     Dates: start: 20210102, end: 20210105

REACTIONS (8)
  - Pruritus genital [Unknown]
  - Dry skin [Unknown]
  - Skin wrinkling [Unknown]
  - Fixed eruption [Unknown]
  - Skin lesion [Unknown]
  - Penile erythema [Unknown]
  - Skin discharge [Unknown]
  - Skin exfoliation [Recovering/Resolving]

NARRATIVE: CASE EVENT DATE: 202101
